FAERS Safety Report 8960414 (Version 1)
Quarter: 2012Q4

REPORT INFORMATION
  Report Type: 
  Country: GB (occurrence: GB)
  Receive Date: 20121211
  Receipt Date: 20121211
  Transmission Date: 20130627
  Serious: Yes (Hospitalization)
  Sender: FDA-Public Use
  Company Number: GB-PFIZER INC-2012306413

PATIENT

DRUGS (3)
  1. LINEZOLID [Suspect]
     Dosage: UNK
  2. CUBICIN [Suspect]
     Dosage: 10 mg/kg, UNK
  3. GENTAMICIN [Concomitant]

REACTIONS (2)
  - Blood creatine phosphokinase increased [Recovered/Resolved]
  - Liver function test abnormal [Recovered/Resolved]
